FAERS Safety Report 5027877-3 (Version None)
Quarter: 2006Q2

REPORT INFORMATION
  Report Type: 
  Country: None (occurrence: None)
  Receive Date: 20060616
  Receipt Date: 20060605
  Transmission Date: 20061013
  Serious: Yes (Hospitalization)
  Sender: FDA-Public Use
  Company Number: AU-ROCHE-450511

PATIENT
  Age: 52 Year
  Sex: Female
  Weight: 50 kg

DRUGS (4)
  1. CAPECITABINE [Suspect]
     Dosage: GIVEN ON DAYS 1-14 OF 21 DAY CYCLE.
     Route: 048
     Dates: start: 20050727
  2. AVASTIN [Suspect]
     Route: 042
     Dates: start: 20050727
  3. MITOMYCIN [Suspect]
     Dosage: 4 DOSES GIVEN AS PER PROTOCOL. REPORTED THAT THE DOSE WAS REDUCED DUE TO THROMBOCYTOPENIA.
     Route: 065
     Dates: start: 20050727
  4. ACETAMINOPHEN W/ CODEINE [Concomitant]
     Route: 048
     Dates: start: 20060601

REACTIONS (5)
  - HYPERTENSION [None]
  - INFARCTION [None]
  - NEPHROTIC SYNDROME [None]
  - PULMONARY HAEMORRHAGE [None]
  - THROMBOCYTOPENIA [None]
